FAERS Safety Report 20084937 (Version 2)
Quarter: 2021Q4

REPORT INFORMATION
  Report Type: Spontaneous
  Country: JP (occurrence: JP)
  Receive Date: 20211118
  Receipt Date: 20211222
  Transmission Date: 20220303
  Serious: Yes (Hospitalization)
  Sender: FDA-Public Use
  Company Number: JP-NOVARTISPH-NVSJ2021JP018865

PATIENT
  Age: 90 Year
  Sex: Female

DRUGS (1)
  1. EXELON PATCH [Suspect]
     Active Substance: RIVASTIGMINE
     Indication: Dementia Alzheimer^s type
     Dosage: PATCH2.5(CM2),EXP 4.5 MG WAS CUT IN HALF AND USED AT EXP 2.25 MG
     Route: 062

REACTIONS (2)
  - Fracture [Recovered/Resolved]
  - Wrong technique in product usage process [Unknown]
